FAERS Safety Report 18277832 (Version 2)
Quarter: 2020Q4

REPORT INFORMATION
  Report Type: Spontaneous
  Country: US (occurrence: US)
  Receive Date: 20200917
  Receipt Date: 20201023
  Transmission Date: 20210113
  Serious: No
  Sender: FDA-Public Use
  Company Number: US-JNJFOC-20200915705

PATIENT
  Age: 45 Year
  Sex: Female
  Weight: 63.56 kg

DRUGS (2)
  1. VISINE A MULTI-ACTION EYE ALLERGY RELIEF [Suspect]
     Active Substance: NAPHAZOLINE HYDROCHLORIDE\PHENIRAMINE MALEATE
     Indication: EYE PRURITUS
  2. VISINE A MULTI-ACTION EYE ALLERGY RELIEF [Suspect]
     Active Substance: NAPHAZOLINE HYDROCHLORIDE\PHENIRAMINE MALEATE
     Indication: EYE ALLERGY
     Dosage: 1 DROP ON THE LEFT EYE 1 TIME ONLY
     Route: 047
     Dates: start: 20200826, end: 20200826

REACTIONS (1)
  - Mydriasis [Recovered/Resolved]

NARRATIVE: CASE EVENT DATE: 20200826
